FAERS Safety Report 5311481-3 (Version None)
Quarter: 2007Q2

REPORT INFORMATION
  Report Type: 
  Country: None (occurrence: None)
  Receive Date: 20070430
  Receipt Date: 20070424
  Transmission Date: 20071010
  Serious: Yes (Death, Hospitalization)
  Sender: FDA-Public Use
  Company Number: FR-AVENTIS-200711448FR

PATIENT
  Age: 84 Year
  Sex: Female
  Weight: 67 kg

DRUGS (13)
  1. RIFADIN [Suspect]
     Route: 048
     Dates: start: 20070119, end: 20070121
  2. RIFATER [Suspect]
     Route: 048
     Dates: start: 20070116, end: 20070119
  3. PIRILENE [Suspect]
     Route: 048
     Dates: start: 20070119, end: 20070121
  4. SOLUPRED                           /00016201/ [Concomitant]
     Route: 048
     Dates: start: 20070119, end: 20070121
  5. MYAMBUTOL [Concomitant]
     Route: 048
     Dates: start: 20070116, end: 20070119
  6. MYAMBUTOL [Concomitant]
     Route: 048
     Dates: start: 20070119, end: 20070121
  7. RIMIFON [Concomitant]
     Route: 048
     Dates: start: 20070119, end: 20070121
  8. METFORMIN HCL [Concomitant]
     Route: 048
     Dates: end: 20070120
  9. DIGOXIN [Concomitant]
  10. SINTROM [Concomitant]
     Indication: PULMONARY EMBOLISM
     Route: 048
     Dates: end: 20070109
  11. SPIRONOLACTONE [Concomitant]
     Indication: HYPERTENSION
     Route: 048
  12. FUROSEMIDE [Concomitant]
     Indication: HYPERTENSION
     Route: 048
  13. INNOHEP                            /01707902/ [Concomitant]
     Indication: DRUG USE FOR UNKNOWN INDICATION
     Route: 058
     Dates: end: 20070121

REACTIONS (5)
  - HEPATIC FAILURE [None]
  - HEPATOCELLULAR DAMAGE [None]
  - HYPERBILIRUBINAEMIA [None]
  - PROTHROMBIN LEVEL DECREASED [None]
  - RENAL FAILURE ACUTE [None]
